FAERS Safety Report 18319156 (Version 1)
Quarter: 2020Q3

REPORT INFORMATION
  Report Type: Spontaneous
  Country: US (occurrence: US)
  Receive Date: 20200928
  Receipt Date: 20200928
  Transmission Date: 20201103
  Serious: No
  Sender: FDA-Public Use
  Company Number: None

PATIENT
  Age: 74 Year
  Sex: Female

DRUGS (1)
  1. IMATINIB MES 100MG TAB [Suspect]
     Active Substance: IMATINIB MESYLATE
     Indication: ANAEMIA
     Route: 048
     Dates: start: 20200416

REACTIONS (2)
  - Therapy interrupted [None]
  - Foot amputation [None]

NARRATIVE: CASE EVENT DATE: 20200925
